FAERS Safety Report 9496335 (Version 3)
Quarter: 2013Q4

REPORT INFORMATION
  Report Type: Report from Study
  Country: JP (occurrence: JP)
  Receive Date: 20130904
  Receipt Date: 20131018
  Transmission Date: 20140711
  Serious: Yes (Other)
  Sender: FDA-Public Use
  Company Number: JP-JNJFOC-20130817291

PATIENT
  Age: 67 Year
  Sex: Female
  Weight: 59 kg

DRUGS (15)
  1. SIMPONI [Suspect]
     Indication: RHEUMATOID ARTHRITIS
     Route: 058
     Dates: start: 20130513, end: 20130513
  2. SIMPONI [Suspect]
     Indication: RHEUMATOID ARTHRITIS
     Route: 058
     Dates: start: 20130709
  3. SIMPONI [Suspect]
     Indication: RHEUMATOID ARTHRITIS
     Route: 058
     Dates: start: 20130121, end: 20130121
  4. METHOTREXATE [Concomitant]
     Indication: RHEUMATOID ARTHRITIS
     Route: 065
     Dates: end: 20120903
  5. METHOTREXATE [Concomitant]
     Indication: RHEUMATOID ARTHRITIS
     Route: 065
     Dates: start: 20130612, end: 20130709
  6. METHOTREXATE [Concomitant]
     Indication: RHEUMATOID ARTHRITIS
     Route: 065
     Dates: start: 20120904, end: 20130611
  7. CELECOX [Concomitant]
     Indication: RHEUMATOID ARTHRITIS
     Route: 048
     Dates: end: 20130612
  8. FOLIAMIN [Concomitant]
     Indication: PROPHYLAXIS
     Route: 048
  9. SOFALCONE [Concomitant]
     Indication: PROPHYLAXIS
     Route: 048
  10. MOHRUS [Concomitant]
     Indication: BONE PAIN
     Route: 061
     Dates: start: 20130517
  11. CEREDIST [Concomitant]
     Indication: PARKINSONISM
     Route: 048
  12. SELEGILINE HYDROCHLORIDE [Concomitant]
     Indication: PARKINSONISM
     Route: 048
  13. LEVODOPA BENSERAZIDE HYDROCHLORIDE [Concomitant]
     Indication: PARKINSONISM
     Route: 048
  14. GENTAMICIN SULFATE [Concomitant]
     Indication: CONTUSION
     Route: 061
  15. TRIAMCINOLONE ACETONIDE [Concomitant]
     Indication: STOMATITIS
     Route: 061

REACTIONS (3)
  - Rib fracture [Not Recovered/Not Resolved]
  - Fall [Recovered/Resolved]
  - Contusion [Not Recovered/Not Resolved]
